FAERS Safety Report 23421727 (Version 1)
Quarter: 2024Q1

REPORT INFORMATION
  Report Type: Spontaneous
  Country: US (occurrence: US)
  Receive Date: 20240119
  Receipt Date: 20240119
  Transmission Date: 20240409
  Serious: No
  Sender: FDA-Public Use
  Company Number: US-PFIZER INC-202400016347

PATIENT
  Age: 92 Year
  Sex: Female

DRUGS (1)
  1. XELJANZ [Suspect]
     Active Substance: TOFACITINIB CITRATE
     Dosage: 5 MG, 2X/DAY
     Dates: start: 2019, end: 202311

REACTIONS (7)
  - COVID-19 [Unknown]
  - Musculoskeletal stiffness [Unknown]
  - Pain [Unknown]
  - Gait inability [Unknown]
  - Laboratory test abnormal [Unknown]
  - Loss of personal independence in daily activities [Unknown]
  - Bedridden [Unknown]

NARRATIVE: CASE EVENT DATE: 20240101
